FAERS Safety Report 14153959 (Version 2)
Quarter: 2018Q1

REPORT INFORMATION
  Report Type: Report from Study
  Country: US (occurrence: US)
  Receive Date: 20171102
  Receipt Date: 20180215
  Transmission Date: 20180508
  Serious: Yes (Hospitalization)
  Sender: FDA-Public Use
  Company Number: US-JNJFOC-20171101150

PATIENT
  Sex: Male

DRUGS (6)
  1. ALLOPURINOL. [Concomitant]
     Active Substance: ALLOPURINOL
  2. LISINOPRIL. [Concomitant]
     Active Substance: LISINOPRIL
  3. IMBRUVICA [Suspect]
     Active Substance: IBRUTINIB
     Indication: CHRONIC LYMPHOCYTIC LEUKAEMIA
     Route: 048
     Dates: start: 20170407
  4. IMBRUVICA [Suspect]
     Active Substance: IBRUTINIB
     Indication: CHRONIC LYMPHOCYTIC LEUKAEMIA
     Route: 048
     Dates: start: 201703, end: 20171215
  5. IMBRUVICA [Suspect]
     Active Substance: IBRUTINIB
     Indication: CHRONIC LYMPHOCYTIC LEUKAEMIA
     Route: 048
  6. FOLIC ACID. [Concomitant]
     Active Substance: FOLIC ACID

REACTIONS (8)
  - Decreased appetite [Unknown]
  - Weight decreased [Recovered/Resolved]
  - Alanine aminotransferase increased [Recovering/Resolving]
  - Pneumonia [Unknown]
  - Hypercalcaemia [Recovering/Resolving]
  - Aspartate aminotransferase increased [Recovering/Resolving]
  - Dizziness [Unknown]
  - Hypotension [Unknown]

NARRATIVE: CASE EVENT DATE: 2017
